FAERS Safety Report 16810434 (Version 1)
Quarter: 2019Q4

REPORT INFORMATION
  Report Type: Spontaneous
  Country: US (occurrence: US)
  Receive Date: 20190916
  Receipt Date: 20190916
  Transmission Date: 20200122
  Serious: No
  Sender: FDA-Public Use
  Company Number: None

PATIENT
  Age: 66 Year
  Sex: Female
  Weight: 61.65 kg

DRUGS (1)
  1. ZOLINZA [Suspect]
     Active Substance: VORINOSTAT
     Indication: CUTANEOUS T-CELL LYMPHOMA
     Dosage: ?          OTHER FREQUENCY:QOD;?
     Route: 048
     Dates: start: 20190227, end: 20190915

REACTIONS (1)
  - Eye ulcer [None]

NARRATIVE: CASE EVENT DATE: 20190915
